FAERS Safety Report 8975036 (Version 1)
Quarter: 2012Q4

REPORT INFORMATION
  Report Type: Spontaneous
  Country: US (occurrence: None)
  Receive Date: 20121211
  Receipt Date: 20121211
  Transmission Date: 20130627
  Serious: Yes (Disabling, Other)
  Sender: FDA-Public Use
  Company Number: ACO_33250_2012

PATIENT
  Sex: Female

DRUGS (1)
  1. AMPYRA (DALFAMPRIDINE) TABLET [Suspect]
     Indication: GAIT DISTURBANCE
     Route: 048
     Dates: start: 201206

REACTIONS (3)
  - Ankle fracture [None]
  - Abasia [None]
  - Fall [None]
